FAERS Safety Report 11936936 (Version 3)
Quarter: 2020Q3

REPORT INFORMATION
  Report Type: Report from Study
  Country: ES (occurrence: ES)
  Receive Date: 20160121
  Receipt Date: 20160331
  Transmission Date: 20201105
  Serious: Yes (Hospitalization)
  Sender: FDA-Public Use
  Company Number: ES-JNJFOC-20151213084

PATIENT
  Age: 73 Year
  Sex: Male
  Weight: 70 kg

DRUGS (12)
  1. INEGY [Concomitant]
     Active Substance: EZETIMIBE\SIMVASTATIN
     Dosage: 10/40 MG WITH DINNER
  2. ADIRO [Concomitant]
     Active Substance: ASPIRIN
     Dosage: WITH LUNCH
  3. NOLOTIL (METAMIZOLE MAGNESIUM) [Concomitant]
     Active Substance: METAMIZOLE MAGNESIUM
  4. LENALIDOMIDE [Suspect]
     Active Substance: LENALIDOMIDE
     Indication: PLASMA CELL MYELOMA
     Dosage: ON DAYS 1?21/ 28
     Route: 048
     Dates: start: 20140714
  5. LYRICA [Concomitant]
     Active Substance: PREGABALIN
     Dosage: WITH BREAKFAST AND DINNER
  6. XERISTAR [Concomitant]
     Active Substance: DULOXETINE HYDROCHLORIDE
     Dosage: WITH BREAKFAST
  7. ENALAPRIL [Concomitant]
     Active Substance: ENALAPRIL
     Dosage: WITH BREAKFAST
  8. DARATUMUMAB [Suspect]
     Active Substance: DARATUMUMAB
     Indication: PLASMA CELL MYELOMA
     Dosage: 16MG/KG, BIO MONTHLY
     Route: 042
     Dates: start: 20140714
  9. PANTOPRAZOLE [Concomitant]
     Active Substance: PANTOPRAZOLE
     Dosage: WITH BREAKFAST
  10. DARATUMUMAB [Suspect]
     Active Substance: DARATUMUMAB
     Route: 042
  11. DEXAMETHASONE. [Suspect]
     Active Substance: DEXAMETHASONE
     Indication: PLASMA CELL MYELOMA
     Dosage: DAY 1, 8, 15, 22
     Route: 048
     Dates: start: 20150714
  12. ACYCLOVIR. [Concomitant]
     Active Substance: ACYCLOVIR
     Dosage: WITH BREAKFAST

REACTIONS (4)
  - General physical health deterioration [Recovered/Resolved]
  - Diarrhoea [Not Recovered/Not Resolved]
  - Periorbital cellulitis [Recovered/Resolved]
  - Gait disturbance [Not Recovered/Not Resolved]

NARRATIVE: CASE EVENT DATE: 20151214
